FAERS Safety Report 8105111-5 (Version None)
Quarter: 2012Q1

REPORT INFORMATION
  Report Type: 
  Country: None (occurrence: None)
  Receive Date: 20120201
  Receipt Date: 20120123
  Transmission Date: 20120608
  Serious: Yes (Hospitalization)
  Sender: FDA-Public Use
  Company Number: TW-PFIZER INC-2010040179

PATIENT
  Age: 59 Year
  Sex: Male
  Weight: 59 kg

DRUGS (11)
  1. TRANEXAMIC ACID [Concomitant]
     Indication: HAEMATURIA
     Dosage: UNK
     Dates: start: 20100301
  2. FOLIC ACID [Concomitant]
     Indication: ANAEMIA
     Dosage: UNK
     Dates: start: 20100212
  3. ZOLEDRONIC ACID [Concomitant]
     Indication: METASTASES TO BONE
     Dosage: UNK
     Dates: start: 20100222
  4. SUNITINIB MALATE [Suspect]
     Indication: PROSTATE CANCER
     Dosage: 37.5 MG, 1X/DAY
     Route: 048
     Dates: start: 20100201, end: 20100328
  5. ACETAMINOPHEN [Concomitant]
     Indication: HERPES ZOSTER
     Dosage: UNK
     Dates: start: 20100208, end: 20100327
  6. SENNOSIDE A+B [Concomitant]
     Indication: CONSTIPATION
     Dosage: UNK
     Dates: start: 20100222
  7. FENTANYL [Concomitant]
     Indication: BONE PAIN
     Dosage: UNK
     Dates: start: 20100319
  8. CEFADROXIL [Concomitant]
     Indication: HAEMATURIA
     Dosage: UNK
     Dates: start: 20100301
  9. PREDNISOLONE [Suspect]
     Indication: PROSTATE CANCER
     Dosage: 5 MG, 2X/DAY
     Route: 048
     Dates: start: 20100201, end: 20100328
  10. ZOLPIDEM [Concomitant]
     Indication: INSOMNIA
     Dosage: UNK
     Dates: start: 20100201
  11. ULTRACET [Concomitant]
     Indication: BONE PAIN
     Dosage: UNK
     Dates: start: 20100301

REACTIONS (1)
  - DECREASED APPETITE [None]
